FAERS Safety Report 23123436 (Version 2)
Quarter: 2025Q1

REPORT INFORMATION
  Report Type: Report from Study
  Country: DE (occurrence: DE)
  Receive Date: 20231030
  Receipt Date: 20250318
  Transmission Date: 20250408
  Serious: Yes (Other)
  Sender: UCB
  Company Number: DE-UCBSA-2023023543

PATIENT
  Age: 44 Year
  Sex: Male
  Weight: 85 kg

DRUGS (5)
  1. BIMEKIZUMAB [Suspect]
     Active Substance: BIMEKIZUMAB
     Indication: Psoriasis
     Dates: start: 20230112, end: 20230406
  2. ACYCLOVIR [Concomitant]
     Active Substance: ACYCLOVIR
     Indication: Herpes virus infection
     Dosage: 400 MILLIGRAM, 5X/DAY
     Route: 048
     Dates: start: 20230504, end: 20230510
  3. ACIVISION [Concomitant]
     Indication: Herpes virus infection
     Dosage: 30 MILLIGRAM, 2X/DAY (BID)
     Dates: start: 20230504, end: 20230510
  4. AMPHOTERICIN B [Concomitant]
     Active Substance: AMPHOTERICIN B
     Indication: Candida infection
     Dosage: 10 MILLIGRAM, EV 4 DAYS
     Route: 048
     Dates: start: 20230519
  5. BIOFANAL [Concomitant]
     Indication: Candida infection
     Dosage: 2 MILLILITER, EV 2 DAYS (QOD)
     Dates: start: 20230525

REACTIONS (3)
  - Conjunctivitis [Unknown]
  - Herpangina [Not Recovered/Not Resolved]
  - Adverse event [Unknown]

NARRATIVE: CASE EVENT DATE: 20230309
